FAERS Safety Report 5225876-X (Version None)
Quarter: 2007Q1

REPORT INFORMATION
  Report Type: 
  Country: None (occurrence: None)
  Receive Date: 20070130
  Receipt Date: 20070130
  Transmission Date: 20070707
  Serious: Yes (Other)
  Sender: FDA-Public Use
  Company Number: None

PATIENT
  Age: 39 Year
  Sex: Female
  Weight: 105.2345 kg

DRUGS (1)
  1. MEFLOQUINE HCL [Suspect]
     Indication: MALARIA PROPHYLAXIS
     Dosage: 1    WEEKLY   PO
     Route: 048
     Dates: start: 20061211, end: 20061231

REACTIONS (4)
  - DYSPNOEA [None]
  - FEAR [None]
  - PALPITATIONS [None]
  - PANIC ATTACK [None]
